FAERS Safety Report 4783189-4 (Version None)
Quarter: 2005Q3

REPORT INFORMATION
  Report Type: 
  Country: None (occurrence: None)
  Receive Date: 20050929
  Receipt Date: 20050825
  Transmission Date: 20060218
  Serious: Yes (Other)
  Sender: FDA-Public Use
  Company Number: GB-GLAXOSMITHKLINE-B0391778A

PATIENT
  Age: 58 Year
  Sex: Male
  Weight: 125 kg

DRUGS (3)
  1. AVANDIA [Suspect]
     Dosage: 4MG PER DAY
     Route: 048
     Dates: start: 20050224
  2. METFORMIN [Concomitant]
  3. ARTHROTEC [Concomitant]
     Dosage: 75G TWICE PER DAY
     Route: 048
     Dates: start: 20010101

REACTIONS (3)
  - ATRIAL FIBRILLATION [None]
  - BRADYCARDIA [None]
  - PALPITATIONS [None]
